FAERS Safety Report 25709606 (Version 1)
Quarter: 2025Q3

REPORT INFORMATION
  Report Type: Spontaneous
  Country: EU (occurrence: EU)
  Receive Date: 20250821
  Receipt Date: 20250821
  Transmission Date: 20251021
  Serious: Yes (Hospitalization, Other)
  Sender: ORGANON
  Company Number: EU-MLMSERVICE-20250728-PI594309-00227-1

PATIENT
  Age: 29 Year
  Sex: Male

DRUGS (1)
  1. MOMETASONE FUROATE [Suspect]
     Active Substance: MOMETASONE FUROATE
     Indication: Dermatitis atopic
     Dosage: 3 TO 5 G PER DAY
     Route: 061

REACTIONS (3)
  - Osteonecrosis [Recovering/Resolving]
  - Intentional product misuse [Unknown]
  - Skin atrophy [Recovering/Resolving]
